FAERS Safety Report 9713372 (Version 1)
Quarter: 2013Q4

REPORT INFORMATION
  Report Type: Spontaneous
  Country: US (occurrence: US)
  Receive Date: 20131126
  Receipt Date: 20131126
  Transmission Date: 20140711
  Serious: Yes (Hospitalization)
  Sender: FDA-Public Use
  Company Number: US-ROXANE LABORATORIES, INC.-2013-RO-01869RO

PATIENT
  Age: 38 Year
  Sex: Female

DRUGS (1)
  1. ROXICET [Suspect]
     Dosage: 30 TABLETS ONE DAY, 20 TABLETS SECOND DAY
     Route: 045

REACTIONS (5)
  - Drug abuse [Unknown]
  - Toxicity to various agents [Unknown]
  - Nausea [Unknown]
  - Pharyngitis [Unknown]
  - Sinusitis [Unknown]
